FAERS Safety Report 25630440 (Version 2)
Quarter: 2025Q4

REPORT INFORMATION
  Report Type: Spontaneous
  Country: EU (occurrence: EU)
  Receive Date: 20250801
  Receipt Date: 20251010
  Transmission Date: 20260118
  Serious: Yes (Death, Life-Threatening, Other)
  Sender: SUNOVION
  Company Number: None

PATIENT
  Age: 39 Year
  Sex: Female

DRUGS (6)
  1. ESTRADIOL\NORETHINDRONE ACETATE\RELUGOLIX [Suspect]
     Active Substance: ESTRADIOL\NORETHINDRONE ACETATE\RELUGOLIX
     Indication: Uterine haemorrhage
     Dosage: 1 TABLETTI KERRAN P?IV?SS? /1 TABLET ONCE A DAY
     Route: 048
     Dates: start: 20250713, end: 20250716
  2. ESTRADIOL\NORETHINDRONE ACETATE\RELUGOLIX [Suspect]
     Active Substance: ESTRADIOL\NORETHINDRONE ACETATE\RELUGOLIX
     Indication: Leiomyoma
  3. ESTRADIOL\NORETHINDRONE ACETATE\RELUGOLIX [Suspect]
     Active Substance: ESTRADIOL\NORETHINDRONE ACETATE\RELUGOLIX
     Indication: Heavy menstrual bleeding
  4. Caprilon [Concomitant]
     Indication: Heavy menstrual bleeding
     Dosage: 1-2 TABLETS 3 TIMES A DAY FOR A 3-6 DAYS^ COURSE DURING HEAVY MENSTRUAL BLEEDING
     Route: 048
  5. IBUPROFEN [Concomitant]
     Active Substance: IBUPROFEN
     Dosage: BURANA 600MG X2
  6. IBUPROFEN [Concomitant]
     Active Substance: IBUPROFEN
     Dosage: BURANA 600MG X2

REACTIONS (3)
  - Pulmonary embolism [Fatal]
  - Tricuspid valve incompetence [Not Recovered/Not Resolved]
  - Cardio-respiratory arrest [Not Recovered/Not Resolved]

NARRATIVE: CASE EVENT DATE: 20250716
